FAERS Safety Report 9012506 (Version 1)
Quarter: 2013Q1

REPORT INFORMATION
  Report Type: Spontaneous
  Country: US (occurrence: US)
  Receive Date: 20130114
  Receipt Date: 20130114
  Transmission Date: 20140127
  Serious: No
  Sender: FDA-Public Use
  Company Number: US-PFIZER INC-2013011603

PATIENT
  Sex: Male

DRUGS (2)
  1. SOMAVERT [Suspect]
     Dosage: 10 MG, UNK
  2. SOMAVERT [Suspect]
     Dosage: 15 MG, UNK

REACTIONS (1)
  - Drug ineffective [Unknown]
